FAERS Safety Report 19194094 (Version 8)
Quarter: 2022Q3

REPORT INFORMATION
  Report Type: Report from Study
  Country: CA (occurrence: CA)
  Receive Date: 20210429
  Receipt Date: 20220713
  Transmission Date: 20221027
  Serious: Yes (Other)
  Sender: FDA-Public Use
  Company Number: CA-TAKEDA-2020TUS017855

PATIENT
  Age: 54 Year
  Sex: Female

DRUGS (10)
  1. VEDOLIZUMAB [Suspect]
     Active Substance: VEDOLIZUMAB
     Indication: Colitis ulcerative
     Dosage: 300 MILLIGRAM
     Route: 042
     Dates: start: 20200224
  2. VEDOLIZUMAB [Suspect]
     Active Substance: VEDOLIZUMAB
     Dosage: 300 MILLIGRAM
     Route: 042
  3. VEDOLIZUMAB [Suspect]
     Active Substance: VEDOLIZUMAB
     Dosage: 300 MILLIGRAM
     Route: 042
  4. VEDOLIZUMAB [Suspect]
     Active Substance: VEDOLIZUMAB
     Dosage: 300 MILLIGRAM
     Route: 042
  5. VEDOLIZUMAB [Suspect]
     Active Substance: VEDOLIZUMAB
     Dosage: 300 MILLIGRAM
     Route: 042
  6. VEDOLIZUMAB [Suspect]
     Active Substance: VEDOLIZUMAB
     Dosage: 300 MILLIGRAM
     Route: 042
  7. VEDOLIZUMAB [Suspect]
     Active Substance: VEDOLIZUMAB
     Dosage: 300 MILLIGRAM, Q4WEEKS
     Route: 042
     Dates: start: 20220517
  8. BUDESONIDE [Concomitant]
     Active Substance: BUDESONIDE
     Dosage: UNK
  9. Cortiment [Concomitant]
     Dosage: UNK
  10. MESALAMINE [Concomitant]
     Active Substance: MESALAMINE
     Dosage: UNK UNK, QD

REACTIONS (4)
  - Colitis ulcerative [Unknown]
  - Abdominal pain [Unknown]
  - Therapeutic product effect decreased [Unknown]
  - Off label use [Unknown]

NARRATIVE: CASE EVENT DATE: 20220517
